FAERS Safety Report 9430432 (Version 1)
Quarter: 2013Q3

REPORT INFORMATION
  Report Type: Spontaneous
  Country: FR (occurrence: FR)
  Receive Date: 20130730
  Receipt Date: 20130730
  Transmission Date: 20140515
  Serious: Yes (Hospitalization)
  Sender: FDA-Public Use
  Company Number: FR-GLAXOSMITHKLINE-B0910102A

PATIENT
  Age: 32 Year
  Sex: Male

DRUGS (5)
  1. MALARONE [Suspect]
     Indication: MALARIA
     Dosage: 4TAB PER DAY
     Route: 048
     Dates: start: 20130524, end: 20130526
  2. ARTESUNATE [Suspect]
     Indication: MALARIA
     Route: 048
     Dates: start: 20130523, end: 20130523
  3. PARACETAMOL [Suspect]
     Indication: PYREXIA
     Dosage: 1G FOUR TIMES PER DAY
     Route: 048
     Dates: start: 20130523, end: 20130525
  4. PRIMPERAN [Concomitant]
     Indication: VOMITING
     Route: 048
     Dates: start: 20130523, end: 20130525
  5. LOVENOX [Concomitant]
     Indication: THROMBOSIS PROPHYLAXIS
     Route: 058
     Dates: start: 20130523, end: 20130525

REACTIONS (2)
  - Drug-induced liver injury [Recovering/Resolving]
  - Rhabdomyolysis [Recovered/Resolved]
